FAERS Safety Report 17401651 (Version 1)
Quarter: 2020Q1

REPORT INFORMATION
  Report Type: Spontaneous
  Country: PL (occurrence: PL)
  Receive Date: 20200211
  Receipt Date: 20200211
  Transmission Date: 20200409
  Serious: Yes (Other)
  Sender: FDA-Public Use
  Company Number: PL-MYLANLABS-2020M1014393

PATIENT
  Age: 68 Year
  Sex: Male

DRUGS (8)
  1. AMITRIPTYLINE [Suspect]
     Active Substance: AMITRIPTYLINE
     Indication: PAIN IN EXTREMITY
     Dosage: 10 MILLIGRAM (INITIAL DOSE AT BED TIME)
     Route: 065
  2. GABAPENTIN. [Suspect]
     Active Substance: GABAPENTIN
     Dosage: 900 MILLIGRAM, QD (300 MG, TID)
     Route: 065
  3. BENFOTIAMINE [Suspect]
     Active Substance: BENFOTIAMINE
     Indication: PAIN IN EXTREMITY
     Dosage: 150 MILLIGRAM, QD
     Route: 065
  4. GABAPENTIN. [Suspect]
     Active Substance: GABAPENTIN
     Indication: PAIN IN EXTREMITY
     Dosage: 300 MILLIGRAM, QD (AT NIGHT)
     Route: 065
  5. AMITRIPTYLINE [Suspect]
     Active Substance: AMITRIPTYLINE
     Dosage: 25 MILLIGRAM (NIGHT TIME)
     Route: 065
  6. PARACETAMOL/TRAMADOL [Suspect]
     Active Substance: ACETAMINOPHEN\TRAMADOL
     Indication: PAIN IN EXTREMITY
     Dosage: 1 DOSAGE FORM, Q6H (1 DF, Q6H)
     Route: 065
  7. PARACETAMOL/TRAMADOL [Suspect]
     Active Substance: ACETAMINOPHEN\TRAMADOL
     Dosage: 1 DOSAGE FORM (AD-HOC)
     Route: 065
  8. AMITRIPTYLINE [Suspect]
     Active Substance: AMITRIPTYLINE
     Dosage: 10 MILLIGRAM (NIGHT TIME)
     Route: 065

REACTIONS (10)
  - Fatigue [Unknown]
  - Constipation [Unknown]
  - Paraesthesia [Unknown]
  - Areflexia [Unknown]
  - Glycosylated haemoglobin increased [Unknown]
  - Dry mouth [Unknown]
  - Drug ineffective [Unknown]
  - Muscle contractions involuntary [Unknown]
  - Disturbance in attention [Unknown]
  - Diabetic neuropathy [Unknown]
